FAERS Safety Report 6890014-4 (Version None)
Quarter: 2010Q3

REPORT INFORMATION
  Report Type: 
  Country: None (occurrence: None)
  Receive Date: 20100730
  Receipt Date: 20080721
  Transmission Date: 20110219
  Serious: No
  Sender: FDA-Public Use
  Company Number: US-PFIZER INC-2008054401

PATIENT
  Sex: Male
  Weight: 90.454 kg

DRUGS (9)
  1. LIPITOR [Suspect]
     Indication: HYPERLIPIDAEMIA
     Dates: start: 20060901, end: 20080515
  2. COREG [Concomitant]
  3. WARFARIN SODIUM [Concomitant]
  4. ALL OTHER THERAPEUTIC PRODUCTS [Concomitant]
  5. BUMEX [Concomitant]
  6. ACETYLSALICYLIC ACID SRT [Concomitant]
  7. DALMANE [Concomitant]
     Route: 048
  8. ALLOPURINOL [Concomitant]
  9. NITROGLYCERIN [Concomitant]
     Route: 060

REACTIONS (9)
  - BACK PAIN [None]
  - BLOOD CHOLESTEROL INCREASED [None]
  - BLOOD GLUCOSE INCREASED [None]
  - BLOOD PHOSPHORUS INCREASED [None]
  - BLOOD TRIGLYCERIDES INCREASED [None]
  - DRUG INEFFECTIVE [None]
  - HERPES ZOSTER [None]
  - LOW DENSITY LIPOPROTEIN INCREASED [None]
  - VITAMIN D DECREASED [None]
